FAERS Safety Report 5427720-4 (Version None)
Quarter: 2007Q3

REPORT INFORMATION
  Report Type: 
  Country: None (occurrence: None)
  Receive Date: 20070828
  Receipt Date: 20070822
  Transmission Date: 20080115
  Serious: Yes (Hospitalization)
  Sender: FDA-Public Use
  Company Number: PHEH2007US09760

PATIENT
  Sex: Female

DRUGS (2)
  1. DIOVAN HCT [Suspect]
     Indication: HYPERTENSION
     Dosage: 160MG VAL/12.5MG HCT, QD
     Dates: start: 20020101
  2. DIOVAN HCT [Suspect]
     Dosage: 320MG VAL/12.5MG HCT, QD

REACTIONS (2)
  - HYPERTENSION [None]
  - LOSS OF CONSCIOUSNESS [None]
